FAERS Safety Report 20628142 (Version 6)
Quarter: 2024Q3

REPORT INFORMATION
  Report Type: Spontaneous
  Country: JP (occurrence: JP)
  Receive Date: 20220323
  Receipt Date: 20240927
  Transmission Date: 20241017
  Serious: Yes (Hospitalization)
  Sender: ROCHE
  Company Number: JP-CHUGAI-2022008973

PATIENT
  Age: 84 Year
  Sex: Male
  Weight: 58.0 kg

DRUGS (4)
  1. AVASTIN [Suspect]
     Active Substance: BEVACIZUMAB
     Indication: Hepatocellular carcinoma
     Route: 041
     Dates: start: 202201
  2. TECENTRIQ [Suspect]
     Active Substance: ATEZOLIZUMAB
     Indication: Hepatocellular carcinoma
     Dosage: 1200 MILLIGRAM/KILOGRAM, ONCE/3WEEKS
     Route: 041
     Dates: start: 202201
  3. ACETAMINOPHEN [Concomitant]
     Active Substance: ACETAMINOPHEN
  4. AMOXICILLIN TRIHYDRATE [Concomitant]
     Active Substance: AMOXICILLIN

REACTIONS (1)
  - Skin ulcer [Recovered/Resolved]
